FAERS Safety Report 9823253 (Version 2)
Quarter: 2014Q1

REPORT INFORMATION
  Report Type: Spontaneous
  Country: PH (occurrence: PH)
  Receive Date: 20140116
  Receipt Date: 20140123
  Transmission Date: 20141002
  Serious: Yes (Other)
  Sender: FDA-Public Use
  Company Number: PHHY2014PH004223

PATIENT
  Age: 48 Year
  Sex: Female

DRUGS (3)
  1. NEORAL [Suspect]
     Dosage: 150 MG, BID
  2. CERTICAN [Suspect]
     Dosage: 500 UG, BID
  3. SIMULECT [Suspect]
     Dosage: 20 MG ON DAY 1 AND 4

REACTIONS (6)
  - Anuria [Recovered/Resolved]
  - Haematoma [Recovered/Resolved]
  - Blood creatinine increased [Recovered/Resolved]
  - Hypertension [Recovered/Resolved]
  - Kidney transplant rejection [Unknown]
  - Inflammation [Unknown]
